FAERS Safety Report 6397905-1 (Version None)
Quarter: 2009Q4

REPORT INFORMATION
  Report Type: 
  Country: None (occurrence: None)
  Receive Date: 20091013
  Receipt Date: 20091004
  Transmission Date: 20100525
  Serious: Yes (Hospitalization)
  Sender: FDA-Public Use
  Company Number: CA-ALLERGAN-0913883US

PATIENT
  Age: 49 Year
  Sex: Female

DRUGS (2)
  1. BOTOX [Suspect]
     Indication: PARESIS
     Dosage: 600 UNITS, SINGLE
     Route: 030
     Dates: start: 20041101, end: 20041101
  2. BOTOX [Suspect]
     Indication: MUSCLE SPASTICITY
     Dosage: 500 UNK, UNK
     Route: 030
     Dates: start: 20040601, end: 20040601

REACTIONS (3)
  - ASTHENIA [None]
  - DIPLOPIA [None]
  - FATIGUE [None]
